FAERS Safety Report 16845835 (Version 1)
Quarter: 2019Q3

REPORT INFORMATION
  Report Type: Spontaneous
  Country: US (occurrence: US)
  Receive Date: 20190924
  Receipt Date: 20190924
  Transmission Date: 20191005
  Serious: No
  Sender: FDA-Public Use
  Company Number: US-CATALYST PHARMACEUTICALS, INC-2019CAT00259

PATIENT
  Age: 79 Year
  Sex: Male
  Weight: 81.63 kg

DRUGS (25)
  1. FIRDAPSE [Suspect]
     Active Substance: AMIFAMPRIDINE
     Indication: MYASTHENIC SYNDROME
     Dosage: 5 MG, 3X/DAY
     Route: 048
     Dates: start: 201906, end: 20190724
  2. CALCITRIN [Concomitant]
     Dosage: UNK, 1X/DAY
  3. FLAXSEED [Concomitant]
     Active Substance: FLAX SEED
     Dosage: UNK, 3X/DAY
  4. TRAZODONE [Concomitant]
     Active Substance: TRAZODONE HYDROCHLORIDE
     Dosage: 100 MG, 2X/DAY
  5. PRAVASTATIN. [Concomitant]
     Active Substance: PRAVASTATIN
     Dosage: UNK
  6. AZATHIOPRINE (ZYDUS) [Suspect]
     Active Substance: AZATHIOPRINE
     Indication: MYASTHENIC SYNDROME
     Dosage: 50 MG, 2X/DAY
     Route: 048
     Dates: start: 2014
  7. AZATHIOPRINE (ZYDUS) [Suspect]
     Active Substance: AZATHIOPRINE
     Dosage: 100 MG, 2X/DAY
     Route: 048
  8. ASPIRIN. [Concomitant]
     Active Substance: ASPIRIN
     Dosage: 81 MG, 1X/DAY
  9. CALCIUM [Concomitant]
     Active Substance: CALCIUM
  10. GLUCOSAMINE [Concomitant]
     Active Substance: GLUCOSAMINE
  11. NASACORT [Concomitant]
     Active Substance: TRIAMCINOLONE ACETONIDE
     Dosage: UNK, 1X/DAY AT NIGHT
  12. GABAPENTIN. [Concomitant]
     Active Substance: GABAPENTIN
     Dosage: 300 MG, 1X/DAY
  13. TERAZOSIN [Concomitant]
     Active Substance: TERAZOSIN HYDROCHLORIDE
     Dosage: 10 MG, 1X/DAY AT NIGHT
  14. TRAMADOL. [Concomitant]
     Active Substance: TRAMADOL
     Dosage: 50 MG, 3X/DAY
  15. HYDROCODONE/ACETAMINOPHEN [Concomitant]
     Active Substance: ACETAMINOPHEN\HYDROCODONE
     Indication: BACK PAIN
     Dosage: 1 TABLETS, 3X/DAY
  16. LISINOPRIL. [Concomitant]
     Active Substance: LISINOPRIL
     Dosage: 2.5 MG, 1X/DAY
  17. METOPROLOL SUCCINATE ER [Concomitant]
     Active Substance: METOPROLOL SUCCINATE
     Dosage: 25 MG, 1X/DAY
  18. VITAMINS [Concomitant]
     Active Substance: VITAMINS
  19. METFORMIN [Concomitant]
     Active Substance: METFORMIN HYDROCHLORIDE
     Dosage: 500 MG, 2X/DAY
  20. FIRDAPSE [Suspect]
     Active Substance: AMIFAMPRIDINE
     Dosage: 30 MG PER DAY
     Route: 048
     Dates: start: 20190724
  21. CELEBREX [Concomitant]
     Active Substance: CELECOXIB
  22. FISH OIL [Concomitant]
     Active Substance: FISH OIL
  23. PRADAXA [Concomitant]
     Active Substance: DABIGATRAN ETEXILATE MESYLATE
     Dosage: 150 MG, 2X/DAY
  24. PYRIDOSTIGMINE BROMIDE. [Concomitant]
     Active Substance: PYRIDOSTIGMINE BROMIDE
     Dosage: 60 MG, 3X/DAY
  25. RESTASIS [Concomitant]
     Active Substance: CYCLOSPORINE
     Dosage: UNK, 2X/DAY

REACTIONS (1)
  - Hepatic enzyme increased [Recovered/Resolved]

NARRATIVE: CASE EVENT DATE: 201907
